FAERS Safety Report 23649349 (Version 1)
Quarter: 2024Q1

REPORT INFORMATION
  Report Type: Spontaneous
  Country: US (occurrence: US)
  Receive Date: 20240319
  Receipt Date: 20240319
  Transmission Date: 20240410
  Serious: No
  Sender: FDA-Public Use
  Company Number: US-PFIZER INC-202400065964

PATIENT
  Age: 81 Year
  Sex: Female
  Weight: 76.66 kg

DRUGS (1)
  1. TIKOSYN [Suspect]
     Active Substance: DOFETILIDE
     Indication: Cardiac disorder
     Dosage: 250 UG, 2X/DAY
     Route: 048

REACTIONS (2)
  - Ear discomfort [Unknown]
  - Nasopharyngitis [Unknown]
